FAERS Safety Report 16877355 (Version 1)
Quarter: 2019Q4

REPORT INFORMATION
  Report Type: Spontaneous
  Country: GB (occurrence: GB)
  Receive Date: 20191002
  Receipt Date: 20191002
  Transmission Date: 20200122
  Serious: Yes (Other)
  Sender: FDA-Public Use
  Company Number: GB-AMGEN-GBRSP2019160095

PATIENT
  Age: 60 Year
  Sex: Male

DRUGS (10)
  1. IRINOTECAN [Concomitant]
     Active Substance: IRINOTECAN
     Indication: METASTASES TO LIVER
  2. FOLINIC ACID [Concomitant]
     Active Substance: LEUCOVORIN
     Indication: METASTASES TO LIVER
  3. OXALIPLATIN. [Suspect]
     Active Substance: OXALIPLATIN
     Indication: METASTASES TO LIVER
  4. PANITUMUMAB [Suspect]
     Active Substance: PANITUMUMAB
     Indication: RECTOSIGMOID CANCER METASTATIC
     Dosage: UNK UNK, CYCLICAL
     Route: 065
     Dates: start: 201802
  5. OXALIPLATIN. [Suspect]
     Active Substance: OXALIPLATIN
     Indication: RECTOSIGMOID CANCER METASTATIC
     Dosage: UNK UNK, CYCLICAL
     Route: 065
     Dates: start: 201802
  6. 5-FU [FLUOROURACIL] [Concomitant]
     Active Substance: FLUOROURACIL
     Indication: METASTASES TO LIVER
  7. IRINOTECAN [Concomitant]
     Active Substance: IRINOTECAN
     Indication: RECTOSIGMOID CANCER METASTATIC
     Dosage: UNK UNK, CYCLICAL
     Dates: start: 201902
  8. PANITUMUMAB [Suspect]
     Active Substance: PANITUMUMAB
     Indication: METASTASES TO LIVER
  9. FOLINIC ACID [Concomitant]
     Active Substance: LEUCOVORIN
     Indication: RECTOSIGMOID CANCER METASTATIC
     Dosage: UNK UNK, CYCLICAL
     Dates: start: 201802
  10. 5-FU [FLUOROURACIL] [Concomitant]
     Active Substance: FLUOROURACIL
     Indication: RECTOSIGMOID CANCER METASTATIC
     Dosage: UNK UNK, CYCLICAL
     Dates: start: 201802

REACTIONS (2)
  - Colorectal cancer metastatic [Unknown]
  - Rash pruritic [Recovering/Resolving]

NARRATIVE: CASE EVENT DATE: 2018
